FAERS Safety Report 7564182-5 (Version None)
Quarter: 2011Q2

REPORT INFORMATION
  Report Type: 
  Country: None (occurrence: None)
  Receive Date: 20110622
  Receipt Date: 20110613
  Transmission Date: 20111010
  Serious: Yes (Other)
  Sender: FDA-Public Use
  Company Number: CA-ASTRAZENECA-2011SE36036

PATIENT
  Age: 63 Year
  Sex: Female

DRUGS (6)
  1. LIPITOR [Concomitant]
  2. CRESTOR [Suspect]
     Route: 048
  3. FUROSEMIDE [Concomitant]
  4. ASPIRIN [Concomitant]
  5. PRAVACHOL [Suspect]
     Route: 065
  6. CORDARONE [Concomitant]
     Indication: HEART RATE

REACTIONS (5)
  - THROAT TIGHTNESS [None]
  - PAIN [None]
  - ASTHENIA [None]
  - DYSPNOEA [None]
  - CONSTIPATION [None]
